FAERS Safety Report 21385202 (Version 1)
Quarter: 2022Q3

REPORT INFORMATION
  Report Type: Spontaneous
  Country: US (occurrence: US)
  Receive Date: 20220928
  Receipt Date: 20220928
  Transmission Date: 20221027
  Serious: Yes (Other)
  Sender: FDA-Public Use
  Company Number: US-BRISTOL-MYERS SQUIBB COMPANY-2022-111996

PATIENT
  Age: 84 Year
  Sex: Female
  Weight: 50.35 kg

DRUGS (9)
  1. REVLIMID [Suspect]
     Active Substance: LENALIDOMIDE
     Indication: Plasma cell myeloma
     Route: 048
     Dates: start: 20220819, end: 20220926
  2. ACETAMINOPHEN [Concomitant]
     Active Substance: ACETAMINOPHEN
     Indication: Product used for unknown indication
     Route: 048
     Dates: start: 20200722
  3. ACYCLOVIR [Concomitant]
     Active Substance: ACYCLOVIR
     Indication: Product used for unknown indication
     Route: 048
     Dates: start: 20200722
  4. Aspirin adult [Concomitant]
     Indication: Product used for unknown indication
     Route: 048
     Dates: start: 20200722
  5. BASAGLAR KWIKPEN [Concomitant]
     Active Substance: INSULIN GLARGINE
     Indication: Product used for unknown indication
     Dosage: 100 UNIT/ML; FREQ: AM
     Route: 058
     Dates: start: 20200722
  6. DEXAMETHASONE [Concomitant]
     Active Substance: DEXAMETHASONE
     Indication: Product used for unknown indication
     Dosage: FREQ: DAYS 1,8,15 AND 22.?5 TABS DI REVLIMID/DEXAMETHASONE NOTED BUT INDICATED TOGET
     Route: 048
     Dates: start: 20200722
  7. OMEPRAZOLE [Concomitant]
     Active Substance: OMEPRAZOLE
     Indication: Product used for unknown indication
     Dosage: FREQ: AM
     Route: 048
     Dates: start: 20200722
  8. VICTOZA [Concomitant]
     Active Substance: LIRAGLUTIDE
     Indication: Product used for unknown indication
     Dosage: 18MG/3ML FREQ: DAILY
     Route: 058
     Dates: start: 20200722
  9. POMALYST [Concomitant]
     Active Substance: POMALIDOMIDE
     Indication: Product used for unknown indication
     Dosage: USE AS DIRECTED
     Route: 048
     Dates: start: 20200923

REACTIONS (1)
  - Plasma cell myeloma [Unknown]
